FAERS Safety Report 25818004 (Version 2)
Quarter: 2025Q4

REPORT INFORMATION
  Report Type: Spontaneous
  Country: IN (occurrence: IN)
  Receive Date: 20250918
  Receipt Date: 20251014
  Transmission Date: 20260117
  Serious: Yes (Other)
  Sender: RANBAXY
  Company Number: IN-SUN PHARMACEUTICAL INDUSTRIES LTD-2025R1-527912

PATIENT
  Age: 55 Year
  Sex: Female

DRUGS (1)
  1. IBANDRONIC ACID [Suspect]
     Active Substance: IBANDRONIC ACID
     Indication: Spinal fracture
     Dosage: UNK
     Route: 048

REACTIONS (2)
  - Cellulitis orbital [Recovering/Resolving]
  - Iridocyclitis [Recovering/Resolving]
